FAERS Safety Report 21296797 (Version 2)
Quarter: 2022Q4

REPORT INFORMATION
  Report Type: Spontaneous
  Country: ZA (occurrence: ZA)
  Receive Date: 20220906
  Receipt Date: 20221025
  Transmission Date: 20230113
  Serious: Yes (Other)
  Sender: FDA-Public Use
  Company Number: ZA-drreddys-SPO/SAF/22/0153990

PATIENT
  Sex: Female

DRUGS (1)
  1. DAPTOMYCIN [Suspect]
     Active Substance: DAPTOMYCIN
     Indication: Septic shock
     Route: 042

REACTIONS (3)
  - Pancytopenia [Recovered/Resolved]
  - Myocardial infarction [Unknown]
  - Drug ineffective [Unknown]
